FAERS Safety Report 11195006 (Version 1)
Quarter: 2015Q2

REPORT INFORMATION
  Report Type: Report from Study
  Country: US (occurrence: None)
  Receive Date: 20150603
  Receipt Date: 20150603
  Transmission Date: 20150821
  Serious: No
  Sender: FDA-Public Use
  Company Number: 2014TASUS000570

PATIENT
  Age: 69 Year
  Sex: Female
  Weight: 95.2 kg

DRUGS (10)
  1. HETLIOZ [Suspect]
     Active Substance: TASIMELTEON
     Indication: CIRCADIAN RHYTHM SLEEP DISORDER
     Route: 048
     Dates: start: 20140812
  2. WELCHOL (COLESEVELAM HYDROCHLORIDE) [Concomitant]
  3. BUPROPION (BUPROPION HYDROCHLORIDE) [Concomitant]
  4. ESCITALOPRAM [Concomitant]
     Active Substance: ESCITALOPRAM OXALATE
  5. ANASTROZOLE. [Concomitant]
     Active Substance: ANASTROZOLE
  6. METFORMIN [Concomitant]
     Active Substance: METFORMIN HYDROCHLORIDE
  7. TOPROL XL [Concomitant]
     Active Substance: METOPROLOL SUCCINATE
  8. CALCIUM (CALCIUM CARBONATE) [Concomitant]
  9. ABILIFY [Concomitant]
     Active Substance: ARIPIPRAZOLE
  10. VITAMINS [Concomitant]
     Active Substance: VITAMINS

REACTIONS (3)
  - Drug ineffective [None]
  - Confusional arousal [None]
  - Drug dose omission [None]

NARRATIVE: CASE EVENT DATE: 20141111
